FAERS Safety Report 8458702 (Version 3)
Quarter: 2013Q2

REPORT INFORMATION
  Report Type: Spontaneous
  Country: BR (occurrence: BR)
  Receive Date: 20120314
  Receipt Date: 20130417
  Transmission Date: 20140414
  Serious: Yes (Other)
  Sender: FDA-Public Use
  Company Number: BR-PFIZER INC-2012062407

PATIENT
  Age: 47 Year
  Sex: Female

DRUGS (5)
  1. FRONTAL [Suspect]
     Indication: ANXIETY
     Dosage: 2 MG, THREE TIMES A DAY
     Route: 048
     Dates: start: 20030711
  2. FRONTAL [Suspect]
     Indication: INSOMNIA
  3. FRONTAL [Suspect]
     Indication: HEADACHE
  4. ALPRAZOLAM [Suspect]
     Indication: ANXIETY
     Dosage: UNK
     Route: 048
  5. CYMBALTA [Concomitant]
     Dosage: 1 DF, 1X/DAY

REACTIONS (10)
  - Uterine disorder [Unknown]
  - Gallbladder disorder [Unknown]
  - Fibromyalgia [Unknown]
  - Hepatic pain [Not Recovered/Not Resolved]
  - Tremor [Not Recovered/Not Resolved]
  - Vision blurred [Not Recovered/Not Resolved]
  - Malaise [Not Recovered/Not Resolved]
  - Sleep disorder [Not Recovered/Not Resolved]
  - Feeling abnormal [Not Recovered/Not Resolved]
  - Neck pain [Not Recovered/Not Resolved]
